FAERS Safety Report 23467394 (Version 1)
Quarter: 2024Q1

REPORT INFORMATION
  Report Type: Spontaneous
  Country: IN (occurrence: IN)
  Receive Date: 20240201
  Receipt Date: 20240201
  Transmission Date: 20240410
  Serious: Yes (Other)
  Sender: FDA-Public Use
  Company Number: IN-002147023-NVSC2024IN017875

PATIENT
  Age: 77 Year
  Sex: Female

DRUGS (1)
  1. RIBOCICLIB [Suspect]
     Active Substance: RIBOCICLIB
     Indication: Product used for unknown indication
     Dosage: 400 MG, QD
     Route: 048
     Dates: start: 20210712

REACTIONS (11)
  - Osteonecrosis of jaw [Unknown]
  - Osteomyelitis [Unknown]
  - Tooth disorder [Unknown]
  - Urinary incontinence [Unknown]
  - Toothache [Unknown]
  - Depressed mood [Unknown]
  - Hyposmia [Unknown]
  - Arthropathy [Unknown]
  - Pain in extremity [Unknown]
  - Fatigue [Unknown]
  - Decreased appetite [Unknown]
